FAERS Safety Report 25920330 (Version 1)
Quarter: 2025Q4

REPORT INFORMATION
  Report Type: Report from Study
  Country: US (occurrence: US)
  Receive Date: 20251014
  Receipt Date: 20251014
  Transmission Date: 20260117
  Serious: No
  Sender: AGIOS PHARMACEUTICALS
  Company Number: US-AGIOS-2510US04507

PATIENT
  Age: 56 Year
  Sex: Female

DRUGS (1)
  1. MITAPIVAT [Suspect]
     Active Substance: MITAPIVAT
     Indication: Pyruvate kinase deficiency anaemia
     Dosage: 50 MILLIGRAM, BID
     Route: 048
     Dates: start: 20230325

REACTIONS (5)
  - Sleep deficit [Unknown]
  - Inappropriate schedule of product administration [Unknown]
  - Poor quality sleep [Unknown]
  - Product dose omission in error [Unknown]
  - Haemoglobin decreased [Unknown]
